FAERS Safety Report 13614864 (Version 1)
Quarter: 2017Q2

REPORT INFORMATION
  Report Type: Spontaneous
  Country: IT (occurrence: IT)
  Receive Date: 20170606
  Receipt Date: 20170606
  Transmission Date: 20170830
  Serious: Yes (Hospitalization)
  Sender: FDA-Public Use
  Company Number: IT-GLAXOSMITHKLINE-IT2017GSK083154

PATIENT
  Age: 21 Year
  Sex: Male

DRUGS (1)
  1. VOLTADVANCE [Suspect]
     Active Substance: DICLOFENAC SODIUM
     Indication: POST-TRAUMATIC PAIN
     Dosage: UNK, SINGLE
     Route: 048
     Dates: start: 20160512, end: 20160512

REACTIONS (1)
  - Rash [Recovering/Resolving]

NARRATIVE: CASE EVENT DATE: 20160512
